FAERS Safety Report 12990051 (Version 3)
Quarter: 2016Q4

REPORT INFORMATION
  Report Type: Spontaneous
  Country: GB (occurrence: GB)
  Receive Date: 20161201
  Receipt Date: 20161213
  Transmission Date: 20170207
  Serious: Yes (Other)
  Sender: FDA-Public Use
  Company Number: GB-MYLANLABS-2016M1052238

PATIENT

DRUGS (15)
  1. CLOZARIL [Suspect]
     Active Substance: CLOZAPINE
     Dosage: UNK
     Route: 048
  2. CLOZARIL [Suspect]
     Active Substance: CLOZAPINE
     Dosage: 150 MG, PM
     Route: 048
     Dates: start: 20161205
  3. LORAZEPAM. [Concomitant]
     Active Substance: LORAZEPAM
     Indication: PRODUCT USED FOR UNKNOWN INDICATION
     Route: 048
  4. CLOZARIL [Suspect]
     Active Substance: CLOZAPINE
     Dosage: 175 MG, PM
     Route: 048
     Dates: start: 20161114, end: 20161126
  5. CLOZARIL [Suspect]
     Active Substance: CLOZAPINE
     Dosage: 50 MG, AM
     Route: 048
     Dates: start: 20161201
  6. CLOZARIL [Suspect]
     Active Substance: CLOZAPINE
     Dosage: 50 MG, AM
     Route: 048
     Dates: start: 20161205
  7. PROPRANOLOL [Concomitant]
     Active Substance: PROPRANOLOL\PROPRANOLOL HYDROCHLORIDE
     Indication: TACHYCARDIA
     Dosage: 20 MG, TID
     Route: 048
     Dates: start: 20161128
  8. LAXIDO                             /06401201/ [Concomitant]
     Active Substance: POLYETHYLENE GLYCOL 3350\POTASSIUM CHLORIDE\SODIUM BICARBONATE\SODIUM CHLORIDE
     Indication: PRODUCT USED FOR UNKNOWN INDICATION
     Dosage: UNK
     Route: 048
  9. SERTRALINE [Concomitant]
     Active Substance: SERTRALINE HYDROCHLORIDE
     Indication: PRODUCT USED FOR UNKNOWN INDICATION
     Dosage: 150 MG, QD
     Route: 048
     Dates: start: 20160905
  10. HALOPERIDOL. [Concomitant]
     Active Substance: HALOPERIDOL
     Indication: PRODUCT USED FOR UNKNOWN INDICATION
     Dosage: UNK
     Route: 048
  11. CLOZARIL [Suspect]
     Active Substance: CLOZAPINE
     Indication: SCHIZOPHRENIA
     Dosage: 100 MG, AM
     Route: 048
     Dates: start: 20161114, end: 20161126
  12. TRIMETHOPRIM. [Concomitant]
     Active Substance: TRIMETHOPRIM
     Indication: URINARY TRACT INFECTION
     Dosage: 200 MG, BID
     Route: 048
     Dates: start: 20161128, end: 20161201
  13. CLOZARIL [Suspect]
     Active Substance: CLOZAPINE
     Dosage: 100 MG, PM
     Route: 048
     Dates: start: 20161201
  14. METFORMIN [Concomitant]
     Active Substance: METFORMIN HYDROCHLORIDE
     Indication: PRODUCT USED FOR UNKNOWN INDICATION
     Dosage: 500 MG, QD
     Route: 048
     Dates: start: 20160905
  15. CARBIMAZOLE [Concomitant]
     Active Substance: CARBIMAZOLE
     Indication: HYPERTHYROIDISM
     Dosage: 20 MG, QD
     Route: 048
     Dates: start: 20161114

REACTIONS (7)
  - Hyperhidrosis [Recovered/Resolved]
  - Salivary hypersecretion [Recovered/Resolved]
  - Pyrexia [Recovered/Resolved]
  - Tachycardia [Recovering/Resolving]
  - Urinary incontinence [Recovering/Resolving]
  - Troponin I increased [Unknown]
  - Blood pressure systolic increased [Recovering/Resolving]

NARRATIVE: CASE EVENT DATE: 2016
